FAERS Safety Report 8157454-7 (Version None)
Quarter: 2012Q1

REPORT INFORMATION
  Report Type: 
  Country: None (occurrence: None)
  Receive Date: 20120217
  Receipt Date: 20120208
  Transmission Date: 20120608
  Serious: Yes (Hospitalization, Other)
  Sender: FDA-Public Use
  Company Number: 2011SP040438

PATIENT
  Age: 56 Year
  Sex: Female

DRUGS (7)
  1. PEG-INTRON [Suspect]
     Indication: HEPATITIS C
     Dates: start: 20110817
  2. PEG-INTRON [Suspect]
     Indication: HEPATITIS C
     Dates: end: 20091007
  3. PEG-INTRON [Suspect]
     Indication: HEPATITIS C
     Dates: start: 20080104, end: 20081003
  4. RIBAVIRIN [Suspect]
     Indication: HEPATITIS C
     Dosage: QD; QD
     Dates: start: 20110817
  5. RIBAVIRIN [Suspect]
     Indication: HEPATITIS C
     Dosage: QD; QD
     Dates: start: 20080104, end: 20081003
  6. RIBAVIRIN [Suspect]
     Indication: HEPATITIS C
     Dosage: QD; QD
     Dates: end: 20091007
  7. VICTRELIS [Suspect]
     Indication: HEPATITIS C
     Dosage: 800 MG; TID; PO
     Route: 048
     Dates: start: 20110914

REACTIONS (12)
  - RASH [None]
  - FATIGUE [None]
  - DYSPNOEA [None]
  - CAPSULE PHYSICAL ISSUE [None]
  - PRODUCT QUALITY ISSUE [None]
  - RED BLOOD CELL COUNT DECREASED [None]
  - HEADACHE [None]
  - ASTHENIA [None]
  - NAUSEA [None]
  - ANAEMIA [None]
  - EPISTAXIS [None]
  - WEIGHT DECREASED [None]
